FAERS Safety Report 25902550 (Version 2)
Quarter: 2025Q4

REPORT INFORMATION
  Report Type: Spontaneous
  Country: US (occurrence: None)
  Receive Date: 20251009
  Receipt Date: 20251018
  Transmission Date: 20260118
  Serious: Yes (Hospitalization, Other)
  Sender: UCB
  Company Number: US-UCBSA-2025062237

PATIENT
  Age: 5 Year

DRUGS (11)
  1. VIMPAT [Suspect]
     Active Substance: LACOSAMIDE
     Indication: Seizure
     Dosage: UNK
  2. LEVETIRACETAM [Suspect]
     Active Substance: LEVETIRACETAM
     Indication: Seizure
     Dosage: 50 MG/KG/DAY
  3. LEVETIRACETAM [Suspect]
     Active Substance: LEVETIRACETAM
     Dosage: 63 MG/KG/DAY
  4. LAMOTRIGINE [Suspect]
     Active Substance: LAMOTRIGINE
     Indication: Seizure
     Dosage: 5.6 MG/KG/DAY
  5. DEPAKOTE [Suspect]
     Active Substance: DIVALPROEX SODIUM
     Indication: Product used for unknown indication
     Dosage: UNK
  6. DEPAKOTE [Suspect]
     Active Substance: DIVALPROEX SODIUM
     Dosage: 250 IN AM AND 375 IN PM
  7. CLOBAZAM [Suspect]
     Active Substance: CLOBAZAM
     Indication: Seizure
     Dosage: 1/2 TABLET IN THE MORNING AND 1.5 TABLET QPM
  8. CALCIUM\VITAMIN D [Concomitant]
     Active Substance: CALCIUM\VITAMIN D
     Indication: Product used for unknown indication
     Dosage: 250 MG/3.125MCG
  9. VALTOCO [Concomitant]
     Active Substance: DIAZEPAM
     Indication: Product used for unknown indication
     Dosage: 10 MILLIGRAM NASAL, AS A SINGLE DOSE  IN ONE NOSTRIL; DO NOT REPEAT DOSE WITHIN 4 HOURS. PRN:SEIZURE} 3 MINUTES.
  10. LEVOCARNITINE [Concomitant]
     Active Substance: LEVOCARNITINE
     Indication: Product used for unknown indication
     Dosage: 330 MILLIGRAM, ONCE DAILY (QD)
  11. MINERALS\VITAMINS [Concomitant]
     Active Substance: MINERALS\VITAMINS
     Indication: Product used for unknown indication
     Dosage: UNK

REACTIONS (12)
  - Seizure [Unknown]
  - Drug titration error [Unknown]
  - Confusional state [Not Recovered/Not Resolved]
  - Anger [Unknown]
  - Enuresis [Unknown]
  - Initial insomnia [Unknown]
  - Anxiety [Unknown]
  - Mysophobia [Unknown]
  - Agitation [Recovered/Resolved]
  - Dizziness [Unknown]
  - Somnolence [Unknown]
  - Treatment failure [Unknown]
